FAERS Safety Report 9914600 (Version 1)
Quarter: 2014Q1

REPORT INFORMATION
  Report Type: Report from Study
  Country: CO (occurrence: CO)
  Receive Date: 20140220
  Receipt Date: 20140220
  Transmission Date: 20141002
  Serious: Yes (Hospitalization)
  Sender: FDA-Public Use
  Company Number: CO-BRISTOL-MYERS SQUIBB COMPANY-20196689

PATIENT
  Age: 46 Year
  Sex: Female

DRUGS (1)
  1. ORENCIA FOR INJ [Suspect]
     Indication: RHEUMATOID ARTHRITIS
     Dosage: LAST DOSE FEB-2014?250MG IV
     Route: 042
     Dates: start: 20121029

REACTIONS (1)
  - Device dislocation [Recovering/Resolving]
